FAERS Safety Report 15209712 (Version 1)
Quarter: 2018Q3

REPORT INFORMATION
  Report Type: Spontaneous
  Country: PL (occurrence: PL)
  Receive Date: 20180727
  Receipt Date: 20180727
  Transmission Date: 20181010
  Serious: Yes (Other)
  Sender: FDA-Public Use
  Company Number: PL-ASTRAZENECA-2018SE93467

PATIENT
  Sex: Female

DRUGS (11)
  1. TETRABENAZINE. [Suspect]
     Active Substance: TETRABENAZINE
     Indication: SCHIZOPHRENIA
     Dosage: 75.0MG UNKNOWN
     Route: 065
  2. ARIPIPRAZOLE. [Suspect]
     Active Substance: ARIPIPRAZOLE
     Indication: SCHIZOPHRENIA
     Route: 065
  3. AMISULPRIDE [Suspect]
     Active Substance: AMISULPRIDE
     Indication: SCHIZOPHRENIA
     Dosage: 800.0MG UNKNOWN
     Route: 065
  4. PERAZINE [Suspect]
     Active Substance: PERAZINE
     Indication: SCHIZOPHRENIA
     Route: 065
  5. ZIPRASIDONE. [Suspect]
     Active Substance: ZIPRASIDONE
     Indication: SCHIZOPHRENIA
     Route: 065
  6. QUETIAPINE. [Suspect]
     Active Substance: QUETIAPINE
     Indication: SCHIZOPHRENIA
     Dosage: 600.0MG UNKNOWN
     Route: 048
  7. ZUCLOPENTHIXOL [Suspect]
     Active Substance: ZUCLOPENTHIXOL
     Indication: SCHIZOPHRENIA
     Route: 065
  8. CLOZAPINE. [Suspect]
     Active Substance: CLOZAPINE
     Indication: SCHIZOPHRENIA
     Dosage: 350.0MG UNKNOWN
     Route: 065
  9. TETRABENAZINE. [Suspect]
     Active Substance: TETRABENAZINE
     Indication: SCHIZOPHRENIA
     Dosage: 50.0MG UNKNOWN
     Route: 065
  10. CHLORPROTHIXENE [Suspect]
     Active Substance: CHLORPROTHIXENE
     Indication: SCHIZOPHRENIA
     Route: 065
  11. TETRABENAZINE. [Suspect]
     Active Substance: TETRABENAZINE
     Indication: SCHIZOPHRENIA
     Dosage: 62.5MG UNKNOWN
     Route: 065

REACTIONS (6)
  - Speech disorder [Unknown]
  - Tardive dyskinesia [Unknown]
  - Synkinesis [Recovering/Resolving]
  - Dysphemia [Unknown]
  - Tremor [Recovering/Resolving]
  - Cogwheel rigidity [Recovering/Resolving]
